FAERS Safety Report 21278634 (Version 5)
Quarter: 2022Q4

REPORT INFORMATION
  Report Type: Spontaneous
  Country: JP (occurrence: JP)
  Receive Date: 20220901
  Receipt Date: 20221024
  Transmission Date: 20230113
  Serious: Yes (Other)
  Sender: FDA-Public Use
  Company Number: JP-MSD-2208JPN003666J

PATIENT
  Age: 86 Year
  Sex: Male

DRUGS (15)
  1. LAGEVRIO [Suspect]
     Active Substance: MOLNUPIRAVIR
     Indication: COVID-19 treatment
     Dosage: 800 MILLIGRAM, BID
     Route: 048
     Dates: start: 20220822, end: 20220824
  2. CALCIUM POLYSTYRENE SULFONATE [Concomitant]
     Active Substance: CALCIUM POLYSTYRENE SULFONATE
     Dosage: 10 GRAM, BID
     Route: 048
     Dates: start: 20220824, end: 20220825
  3. CALCIUM POLYSTYRENE SULFONATE [Concomitant]
     Active Substance: CALCIUM POLYSTYRENE SULFONATE
     Dosage: 10 GRAM, QD
     Route: 048
     Dates: start: 20220826, end: 20220827
  4. TRANEXAMIC ACID [Concomitant]
     Active Substance: TRANEXAMIC ACID
     Dosage: 250 MILLIGRAM, TID
     Route: 048
     Dates: start: 20220823, end: 20220829
  5. BISOPROLOL FUMARATE [Concomitant]
     Active Substance: BISOPROLOL FUMARATE
     Dosage: 2.5 MILLIGRAM, QD
     Route: 048
     Dates: start: 20220817, end: 20220829
  6. FEBUXOSTAT [Concomitant]
     Active Substance: FEBUXOSTAT
     Dosage: 10 MILLIGRAM, QD
     Route: 048
     Dates: start: 20220823, end: 20220905
  7. AZOSEMIDE [Concomitant]
     Active Substance: AZOSEMIDE
     Dosage: 30 MILLIGRAM, QD
     Route: 048
     Dates: start: 20220823, end: 20220905
  8. DAPAGLIFLOZIN [Concomitant]
     Active Substance: DAPAGLIFLOZIN
     Dosage: 5 MILLIGRAM, QD
     Route: 048
     Dates: start: 20220823, end: 20220905
  9. ENTRESTO [Concomitant]
     Active Substance: SACUBITRIL\VALSARTAN
     Dosage: 50 MILLIGRAM, QD
     Route: 048
     Dates: start: 20220823, end: 20220905
  10. SAMSCA [Concomitant]
     Active Substance: TOLVAPTAN
     Dosage: 7.5 MILLIGRAM, QD
     Route: 048
     Dates: start: 20220823, end: 20220905
  11. VILDAGLIPTIN [Concomitant]
     Active Substance: VILDAGLIPTIN
     Dosage: 25 MILLIGRAM, QD
     Route: 048
     Dates: start: 20220823, end: 20220905
  12. MOVICOL [Concomitant]
     Active Substance: POLYETHYLENE GLYCOL 3350\POTASSIUM CHLORIDE\SODIUM BICARBONATE\SODIUM CHLORIDE
     Dosage: 2 PACKAGES, QD
     Route: 048
     Dates: start: 20220823, end: 20220905
  13. LANSOPRAZOLE [Concomitant]
     Active Substance: LANSOPRAZOLE
     Dosage: 15 MILLIGRAM, QD
     Route: 048
     Dates: start: 20220823, end: 20220905
  14. EDOXABAN TOSYLATE [Concomitant]
     Active Substance: EDOXABAN TOSYLATE
     Dosage: 15 MILLIGRAM, QD
     Route: 048
     Dates: start: 20220823, end: 20220905
  15. EBASTINE [Concomitant]
     Active Substance: EBASTINE
     Dosage: 10 MILLIGRAM, QD
     Route: 048
     Dates: start: 20220823, end: 20220905

REACTIONS (2)
  - Hepatic function abnormal [Recovered/Resolved]
  - Off label use [Unknown]

NARRATIVE: CASE EVENT DATE: 20220822
